FAERS Safety Report 22131196 (Version 1)
Quarter: 2023Q1

REPORT INFORMATION
  Report Type: Spontaneous
  Country: US (occurrence: US)
  Receive Date: 20230323
  Receipt Date: 20230323
  Transmission Date: 20230417
  Serious: No
  Sender: FDA-Public Use
  Company Number: TU22-1310420

PATIENT
  Sex: Female

DRUGS (1)
  1. FML [Suspect]
     Active Substance: FLUOROMETHOLONE
     Indication: Dry eye
     Dosage: UNK
     Route: 047

REACTIONS (1)
  - Ocular hyperaemia [Unknown]
